FAERS Safety Report 8820959 (Version 2)
Quarter: 2013Q1

REPORT INFORMATION
  Report Type: Report from Study
  Country: FR (occurrence: FR)
  Receive Date: 20121002
  Receipt Date: 20130228
  Transmission Date: 20140127
  Serious: Yes (Hospitalization)
  Sender: FDA-Public Use
  Company Number: FR-ROCHE-1132604

PATIENT
  Sex: Female
  Weight: 75 kg

DRUGS (28)
  1. TOCILIZUMAB [Suspect]
     Indication: RHEUMATOID ARTHRITIS
     Route: 042
     Dates: start: 20110216
  2. TOCILIZUMAB [Suspect]
     Route: 065
     Dates: start: 20110316
  3. TOCILIZUMAB [Suspect]
     Dosage: REINTRODUCED
     Route: 065
     Dates: start: 20110526
  4. TOCILIZUMAB [Suspect]
     Route: 065
     Dates: start: 20110624
  5. TOCILIZUMAB [Suspect]
     Route: 065
     Dates: start: 20110722
  6. TOCILIZUMAB [Suspect]
     Route: 065
     Dates: start: 20120823
  7. TOCILIZUMAB [Suspect]
     Route: 065
     Dates: start: 20110921
  8. TOCILIZUMAB [Suspect]
     Route: 065
     Dates: start: 20111019
  9. TOCILIZUMAB [Suspect]
     Dosage: TEMPORARILY INTERRUPTED
     Route: 065
     Dates: start: 20120119
  10. TOCILIZUMAB [Suspect]
     Route: 065
     Dates: start: 20120313
  11. TOCILIZUMAB [Suspect]
     Dosage: RESTARTED
     Route: 065
     Dates: start: 20120613
  12. TOCILIZUMAB [Suspect]
     Route: 065
     Dates: start: 20120711
  13. TOCILIZUMAB [Suspect]
     Route: 065
     Dates: start: 20120807
  14. CORTANCYL [Concomitant]
     Indication: RHEUMATOID ARTHRITIS
     Route: 048
     Dates: start: 2007
  15. CORTANCYL [Concomitant]
     Route: 065
  16. CORTANCYL [Concomitant]
     Route: 065
     Dates: start: 20120313
  17. CORTANCYL [Concomitant]
     Route: 065
     Dates: start: 20120613
  18. CORTANCYL [Concomitant]
     Route: 065
     Dates: start: 20120711
  19. CORTANCYL [Concomitant]
     Route: 065
     Dates: start: 20120807
  20. TRAMADOL [Concomitant]
     Route: 065
  21. INEXIUM [Concomitant]
     Route: 065
  22. ALDACTONE [Concomitant]
     Route: 065
  23. LODOZ [Concomitant]
     Route: 065
  24. ACTISKENAN [Concomitant]
  25. INEXIUM [Concomitant]
     Route: 065
  26. SPECIAFOLDINE [Concomitant]
     Route: 065
  27. ZOLPIDEM [Concomitant]
     Route: 065
  28. NOCTAMIDE [Concomitant]

REACTIONS (11)
  - Skin ulcer [Recovered/Resolved]
  - Arthrodesis [Recovered/Resolved]
  - Cholecystectomy [Recovered/Resolved]
  - Cataract operation [Recovered/Resolved]
  - Vomiting [Recovered/Resolved]
  - Pyrexia [Recovered/Resolved]
  - Urinary tract infection [Recovered/Resolved]
  - Lower gastrointestinal haemorrhage [Recovered/Resolved]
  - Gravitational oedema [Recovered/Resolved]
  - Diarrhoea haemorrhagic [Recovered/Resolved]
  - Weight increased [Recovered/Resolved]
